FAERS Safety Report 7226740-7 (Version None)
Quarter: 2011Q1

REPORT INFORMATION
  Report Type: 
  Country: None (occurrence: None)
  Receive Date: 20110105
  Receipt Date: 20101220
  Transmission Date: 20110831
  Serious: Yes (Hospitalization, Other)
  Sender: FDA-Public Use
  Company Number: OU-10-044

PATIENT
  Age: 40 Year
  Sex: Male

DRUGS (3)
  1. PHENYTOIN [Suspect]
     Indication: STATUS EPILEPTICUS
     Dosage: 100 MG/12 H;
  2. CEFTRIAXONE [Suspect]
     Indication: BRAIN ABSCESS
     Dosage: 2 G/12 H ;IV
     Route: 042
  3. METRONIDAZOLE [Concomitant]

REACTIONS (5)
  - LYMPHOCYTE TRANSFORMATION TEST POSITIVE [None]
  - GAMMA-GLUTAMYLTRANSFERASE INCREASED [None]
  - ASPARTATE AMINOTRANSFERASE INCREASED [None]
  - ALANINE AMINOTRANSFERASE INCREASED [None]
  - DRUG RASH WITH EOSINOPHILIA AND SYSTEMIC SYMPTOMS [None]
